FAERS Safety Report 18690809 (Version 2)
Quarter: 2021Q1

REPORT INFORMATION
  Report Type: Report from Study
  Country: IN (occurrence: IN)
  Receive Date: 20210101
  Receipt Date: 20210104
  Transmission Date: 20210419
  Serious: Yes (Death)
  Sender: FDA-Public Use
  Company Number: IN-ROCHE-2741732

PATIENT
  Age: 56 Year
  Sex: Female
  Weight: 81.5 kg

DRUGS (3)
  1. ATEZOLIZUMAB. [Suspect]
     Active Substance: ATEZOLIZUMAB
     Indication: TRIPLE NEGATIVE BREAST CANCER
     Dosage: ON DAYS 1 AND 15 (+? 3 DAYS) OF EVERY 28?DAY CYCLE.?THE DATE OF MOST RECENT DOSE OF BLINDED ATEZOLIZ
     Route: 042
     Dates: start: 20190516
  2. PACLITAXEL. [Suspect]
     Active Substance: PACLITAXEL
     Indication: TRIPLE NEGATIVE BREAST CANCER
     Dosage: ON DAYS 1, 8, AND 15 OF EVERY 28?DAY CYCLE.?THE DATE OF MOST RECENT DOSE OF PACLITAXEL (90 MG) PRIOR
     Route: 042
     Dates: start: 20190516
  3. TELMISARTAN. [Concomitant]
     Active Substance: TELMISARTAN

REACTIONS (1)
  - Death [Fatal]

NARRATIVE: CASE EVENT DATE: 20201020
